FAERS Safety Report 8222596-4 (Version None)
Quarter: 2012Q1

REPORT INFORMATION
  Report Type: 
  Country: None (occurrence: None)
  Receive Date: 20120320
  Receipt Date: 20120312
  Transmission Date: 20120608
  Serious: Yes (Other)
  Sender: FDA-Public Use
  Company Number: US-ABBOTT-12P-163-0914574-00

PATIENT
  Age: 25 Year
  Sex: Female
  Weight: 38.59 kg

DRUGS (4)
  1. HUMIRA [Suspect]
     Indication: RHEUMATOID ARTHRITIS
     Dates: start: 20110801
  2. HYDROXYCHLOR [Concomitant]
     Indication: ARTHRITIS
     Dates: end: 20120101
  3. NAPROXEN [Concomitant]
     Indication: ARTHRITIS
     Dates: end: 20120101
  4. OXYCODONE HCL [Suspect]
     Indication: PROCEDURAL PAIN
     Dates: start: 20120110

REACTIONS (9)
  - ENDOMETRIOSIS [None]
  - INJECTION SITE HAEMORRHAGE [None]
  - INJECTION SITE PAIN [None]
  - ABDOMINAL PAIN [None]
  - INJECTION SITE PRURITUS [None]
  - INJECTION SITE ERYTHEMA [None]
  - INJECTION SITE MASS [None]
  - DYSPNOEA [None]
  - CHEST DISCOMFORT [None]
